FAERS Safety Report 9304093 (Version 1)
Quarter: 2012Q4

REPORT INFORMATION
  Report Type: Spontaneous
  Country: US (occurrence: None)
  Receive Date: 20121210
  Receipt Date: 20121210
  Transmission Date: 20130627
  Serious: Yes (Other)
  Sender: FDA-Public Use
  Company Number: ADR-2012-02195

PATIENT
  Sex: Male

DRUGS (1)
  1. BACLOFEN INTRATHECAL [Suspect]

REACTIONS (7)
  - Gastric disorder [None]
  - Mental status changes [None]
  - Implant site scar [None]
  - Abdominal distension [None]
  - Discomfort [None]
  - Abnormal behaviour [None]
  - Medical device complication [None]
